FAERS Safety Report 8932024 (Version 1)
Quarter: 2012Q4

REPORT INFORMATION
  Report Type: 
  Country: ES (occurrence: ES)
  Receive Date: 20121128
  Receipt Date: 20121128
  Transmission Date: 20130627
  Serious: Yes (Other)
  Sender: FDA-Public Use
  Company Number: ES-PFIZER INC-2012295644

PATIENT
  Age: 45 Year
  Sex: Male

DRUGS (3)
  1. SUTENT [Suspect]
     Indication: RENAL CANCER
     Dosage: 50 mg, 1x/day
     Route: 048
     Dates: start: 20120620, end: 20120718
  2. METAMIZOLE [Concomitant]
     Dosage: 575 mg, every 3 days
     Route: 048
     Dates: start: 20120701
  3. KETESSE [Concomitant]
     Dosage: 75 mg, every 2 days
     Route: 048
     Dates: start: 20120701

REACTIONS (1)
  - Necrotising fasciitis [Recovering/Resolving]
